FAERS Safety Report 23268746 (Version 1)
Quarter: 2023Q4

REPORT INFORMATION
  Report Type: Spontaneous
  Country: CN (occurrence: CN)
  Receive Date: 20231206
  Receipt Date: 20231206
  Transmission Date: 20240109
  Serious: Yes (Other)
  Sender: FDA-Public Use
  Company Number: CN-009507513-2312CHN000077

PATIENT
  Age: 59 Year
  Sex: Female

DRUGS (3)
  1. TEMODAL [Suspect]
     Active Substance: TEMOZOLOMIDE
     Indication: Oligodendroglioma
     Dosage: 1ST DOSE
     Route: 048
     Dates: start: 20231125
  2. TEMODAL [Suspect]
     Active Substance: TEMOZOLOMIDE
     Dosage: 2ND DOSE
     Route: 048
     Dates: start: 20231126
  3. TEMODAL [Suspect]
     Active Substance: TEMOZOLOMIDE
     Dosage: 3RD DOSE
     Route: 048
     Dates: start: 20231127

REACTIONS (5)
  - Gastrointestinal tube insertion [Unknown]
  - Expired product administered [Unknown]
  - Product use in unapproved indication [Unknown]
  - Wrong technique in product usage process [Unknown]
  - Incorrect route of product administration [Unknown]

NARRATIVE: CASE EVENT DATE: 20231101
